FAERS Safety Report 9946836 (Version 1)
Quarter: 2014Q1

REPORT INFORMATION
  Report Type: Report from Study
  Country: US (occurrence: US)
  Receive Date: 20140303
  Receipt Date: 20140303
  Transmission Date: 20141002
  Serious: No
  Sender: FDA-Public Use
  Company Number: US-ABBVIE-13P-163-1060353-00

PATIENT
  Sex: Female

DRUGS (5)
  1. HUMIRA [Suspect]
     Indication: CROHN^S DISEASE
     Dosage: LOADING DOSE
     Dates: start: 201209, end: 201209
  2. HUMIRA [Suspect]
     Indication: RHEUMATOID ARTHRITIS
     Dosage: 2 WEEKS AFTER INITIAL DOSE
     Dates: start: 201209, end: 201209
  3. HUMIRA [Suspect]
     Dates: start: 201210
  4. TRAMADOL [Concomitant]
     Indication: PAIN
  5. MARIJUANA [Concomitant]

REACTIONS (6)
  - Oral pain [Not Recovered/Not Resolved]
  - Malaise [Not Recovered/Not Resolved]
  - Toothache [Not Recovered/Not Resolved]
  - Arthralgia [Not Recovered/Not Resolved]
  - Drug ineffective [Not Recovered/Not Resolved]
  - Migraine [Recovered/Resolved]
